FAERS Safety Report 13339555 (Version 6)
Quarter: 2018Q3

REPORT INFORMATION
  Report Type: Spontaneous
  Country: JP (occurrence: JP)
  Receive Date: 20170315
  Receipt Date: 20180904
  Transmission Date: 20181010
  Serious: Yes (Death, Hospitalization, Disabling, Other)
  Sender: FDA-Public Use
  Company Number: JP-BRISTOL-MYERS SQUIBB COMPANY-BMS-2017-011164

PATIENT
  Age: 71 Year
  Sex: Female

DRUGS (1)
  1. OPDIVO [Suspect]
     Active Substance: NIVOLUMAB
     Indication: NON-SMALL CELL LUNG CANCER
     Dosage: UNK UNK, Q2WK
     Route: 041
     Dates: start: 20160826, end: 2017

REACTIONS (7)
  - Death [Fatal]
  - Adrenal insufficiency [Recovered/Resolved]
  - Hypophysitis [Recovered/Resolved]
  - Colitis [Recovering/Resolving]
  - Neuropathy peripheral [Recovering/Resolving]
  - Hypoaesthesia [Unknown]
  - Musculoskeletal pain [Unknown]

NARRATIVE: CASE EVENT DATE: 201612
